FAERS Safety Report 10918634 (Version 3)
Quarter: 2015Q3

REPORT INFORMATION
  Report Type: Spontaneous
  Country: US (occurrence: US)
  Receive Date: 20150316
  Receipt Date: 20150914
  Transmission Date: 20151125
  Serious: No
  Sender: FDA-Public Use
  Company Number: US-ASTELLAS-2015US005639

PATIENT
  Age: 68 Year
  Sex: Male

DRUGS (3)
  1. RAVELLA [Concomitant]
     Indication: PRODUCT USED FOR UNKNOWN INDICATION
     Dosage: UNKNOWN ROUTE, DOSE AND FREQ.
     Route: 065
  2. XTANDI [Suspect]
     Active Substance: ENZALUTAMIDE
     Indication: PROSTATE CANCER
     Route: 048
     Dates: start: 20141028, end: 20150702
  3. LUPRON [Concomitant]
     Active Substance: LEUPROLIDE ACETATE
     Indication: PRODUCT USED FOR UNKNOWN INDICATION
     Dosage: UNKNOWN ROUTE, DOSE AND FREQ.
     Route: 065

REACTIONS (14)
  - Tinnitus [Recovering/Resolving]
  - Back pain [Recovering/Resolving]
  - Arthralgia [Not Recovered/Not Resolved]
  - Sinus congestion [Not Recovered/Not Resolved]
  - Gait disturbance [Recovering/Resolving]
  - Asthenia [Recovering/Resolving]
  - Constipation [Recovering/Resolving]
  - Influenza like illness [Unknown]
  - Myalgia [Not Recovered/Not Resolved]
  - Fatigue [Recovered/Resolved]
  - Sneezing [Recovering/Resolving]
  - Dizziness [Recovering/Resolving]
  - Dyspnoea [Recovering/Resolving]
  - Nasal congestion [Recovering/Resolving]

NARRATIVE: CASE EVENT DATE: 201410
